FAERS Safety Report 8535165-3 (Version None)
Quarter: 2012Q3

REPORT INFORMATION
  Report Type: 
  Country: None (occurrence: None)
  Receive Date: 20120724
  Receipt Date: 20120719
  Transmission Date: 20120928
  Serious: Yes (Hospitalization, Other)
  Sender: FDA-Public Use
  Company Number: JP-B.I. PHARMACEUTICALS,INC./RIDGEFIELD-2012-BP-14258NB

PATIENT
  Age: 82 Year
  Sex: Female
  Weight: 52.9 kg

DRUGS (12)
  1. VERAPAMIL HCL [Concomitant]
     Indication: ATRIAL FIBRILLATION
     Dosage: 240 MG
     Route: 048
     Dates: end: 20120613
  2. ALPRAZOLAM [Concomitant]
     Dosage: 0.8 MG
     Route: 065
  3. PRADAXA [Suspect]
     Indication: ATRIAL FIBRILLATION
     Dosage: 220 MG
     Route: 048
     Dates: start: 20120605, end: 20120613
  4. FAMOTIDINE [Concomitant]
     Dosage: 20 MG
     Route: 065
  5. BISOPROLOL FUMARATE [Concomitant]
     Dosage: 5 MG
     Route: 065
  6. PLAVIX [Concomitant]
     Indication: ANTIPLATELET THERAPY
     Dosage: 75 MG
     Route: 048
     Dates: end: 20120613
  7. OLMESARTAN MEDOXOMIL [Concomitant]
     Indication: HYPERTENSION
     Dosage: 20 MG
     Route: 048
     Dates: end: 20120613
  8. HALCION [Concomitant]
     Dosage: 0.25 MG
     Route: 065
  9. AMLODIPINE BESYLATE [Concomitant]
     Indication: HYPERTENSION
     Dosage: 5 MG
     Route: 048
     Dates: end: 20120613
  10. LASIX [Concomitant]
     Dosage: 20 MG
     Route: 065
  11. MAGMITT [Concomitant]
     Dosage: 660 MG
     Route: 065
  12. KREMEZIN [Concomitant]
     Dosage: 6 G
     Route: 065

REACTIONS (8)
  - CARDIAC FAILURE [None]
  - VOMITING [None]
  - ALANINE AMINOTRANSFERASE INCREASED [None]
  - ASPARTATE AMINOTRANSFERASE INCREASED [None]
  - BLOOD PRESSURE DECREASED [None]
  - PYREXIA [None]
  - INTERNATIONAL NORMALISED RATIO ABNORMAL [None]
  - MALAISE [None]
